FAERS Safety Report 4515671-9 (Version None)
Quarter: 2004Q4

REPORT INFORMATION
  Report Type: 
  Country: None (occurrence: None)
  Receive Date: 20041201
  Receipt Date: 20041021
  Transmission Date: 20050328
  Serious: Yes (Disabling)
  Sender: FDA-Public Use
  Company Number: AU-MERCK-0411AUS00043

PATIENT
  Age: 72 Year
  Sex: Female
  Weight: 57 kg

DRUGS (11)
  1. ZETIA [Suspect]
     Indication: HYPERCHOLESTEROLAEMIA
     Route: 048
     Dates: start: 20040101, end: 20041019
  2. VERAPAMIL [Concomitant]
     Route: 065
  3. AMIODARONE [Concomitant]
     Route: 065
  4. RAMIPRIL [Concomitant]
     Route: 065
  5. POTASSIUM CHLORIDE [Concomitant]
     Route: 065
  6. FUROSEMIDE SODIUM [Concomitant]
     Route: 065
  7. ASPIRIN [Concomitant]
     Route: 065
  8. WARFARIN [Concomitant]
     Route: 065
  9. NIACIN [Concomitant]
     Route: 065
  10. DOTHIEPIN HYDROCHLORIDE [Concomitant]
     Route: 065
  11. CALCIUM CARBONATE [Concomitant]
     Route: 065

REACTIONS (8)
  - BLOOD BILIRUBIN INCREASED [None]
  - DERMATITIS [None]
  - MONOCYTE COUNT DECREASED [None]
  - PAIN [None]
  - RASH ERYTHEMATOUS [None]
  - RASH PRURITIC [None]
  - SWELLING [None]
  - WHITE BLOOD CELL COUNT INCREASED [None]
